FAERS Safety Report 9059194 (Version 1)
Quarter: 2013Q1

REPORT INFORMATION
  Report Type: Spontaneous
  Country: US (occurrence: US)
  Receive Date: 20130211
  Receipt Date: 20130211
  Transmission Date: 20140127
  Serious: No
  Sender: FDA-Public Use
  Company Number: US-BRISTOL-MYERS SQUIBB COMPANY-17170283

PATIENT
  Age: 80 Year
  Sex: Female
  Weight: 127.89 kg

DRUGS (1)
  1. GLUCOPHAGE [Suspect]
     Indication: DIABETES MELLITUS
     Dosage: 1DF:1TAB
     Dates: start: 200210

REACTIONS (5)
  - Arthritis [Unknown]
  - Somnolence [Recovered/Resolved]
  - Flatulence [Unknown]
  - Abdominal pain upper [Unknown]
  - Fatigue [Recovered/Resolved]
